FAERS Safety Report 4712201-3 (Version None)
Quarter: 2005Q3

REPORT INFORMATION
  Report Type: 
  Country: None (occurrence: None)
  Receive Date: 20050712
  Receipt Date: 20050701
  Transmission Date: 20060218
  Serious: Yes (Hospitalization)
  Sender: FDA-Public Use
  Company Number: US-ROCHE-409795

PATIENT
  Age: 52 Year
  Sex: Male
  Weight: 93 kg

DRUGS (3)
  1. PEGASYS [Suspect]
     Route: 058
     Dates: start: 20050415
  2. COPEGUS [Suspect]
     Dosage: DOSAGE REGIMEN: 2 AM, 2 PM.
     Route: 048
     Dates: start: 20050415
  3. CLINDAMYCIN [Concomitant]
     Dates: start: 20050609

REACTIONS (9)
  - BACTERAEMIA [None]
  - CHILLS [None]
  - DEEP VEIN THROMBOSIS [None]
  - HYPERHIDROSIS [None]
  - INSOMNIA [None]
  - LOSS OF CONSCIOUSNESS [None]
  - PYREXIA [None]
  - RENAL PAIN [None]
  - VOMITING [None]
